FAERS Safety Report 7338786-9 (Version None)
Quarter: 2011Q1

REPORT INFORMATION
  Report Type: 
  Country: None (occurrence: None)
  Receive Date: 20110308
  Receipt Date: 20110301
  Transmission Date: 20110831
  Serious: Yes (Other)
  Sender: FDA-Public Use
  Company Number: FR-PFIZER INC-2011044317

PATIENT
  Age: 70 Year
  Sex: Female

DRUGS (3)
  1. ALENDRONIC ACID [Concomitant]
  2. VENLAFAXINE [Concomitant]
  3. AROMASIN [Suspect]
     Indication: BREAST CANCER
     Dosage: 1 DF, 1X/DAY
     Route: 048
     Dates: start: 20100701

REACTIONS (1)
  - EYE OEDEMA [None]
